FAERS Safety Report 4908009-6 (Version None)
Quarter: 2006Q1

REPORT INFORMATION
  Report Type: 
  Country: None (occurrence: None)
  Receive Date: 20060210
  Receipt Date: 20020913
  Transmission Date: 20060701
  Serious: Yes (Other)
  Sender: FDA-Public Use
  Company Number: JP-GLAXOSMITHKLINE-B0279999A

PATIENT
  Age: 40 Year
  Sex: Male
  Weight: 65 kg

DRUGS (8)
  1. LAMIVUDINE [Suspect]
     Indication: HIV INFECTION
     Dosage: 300MG PER DAY
     Route: 048
     Dates: start: 20010118
  2. STAVUDINE [Suspect]
     Indication: HIV INFECTION
     Dosage: 80MGD PER DAY
     Route: 048
     Dates: start: 20010118, end: 20010410
  3. INDINAVIR [Suspect]
     Indication: HIV INFECTION
     Dosage: 800MGD PER DAY
     Route: 048
     Dates: start: 20010118, end: 20010410
  4. RITONAVIR [Suspect]
     Indication: HIV INFECTION
     Route: 048
     Dates: start: 20010118
  5. REYATAZ [Suspect]
     Indication: HIV INFECTION
     Dosage: 300MG PER DAY
     Route: 048
     Dates: start: 20040722
  6. SULFAMETHOXAZOLE + TRIMETHOPRIM [Concomitant]
     Route: 048
     Dates: start: 20010401
  7. VIREAD [Concomitant]
     Indication: HIV INFECTION
     Dosage: 300MG PER DAY
     Route: 048
     Dates: start: 20040722
  8. VALTREX [Concomitant]
     Indication: HERPES ZOSTER
     Route: 048
     Dates: start: 20050328

REACTIONS (5)
  - BLOOD CHOLESTEROL INCREASED [None]
  - BLOOD GLUCOSE INCREASED [None]
  - BLOOD TRIGLYCERIDES INCREASED [None]
  - DIABETES MELLITUS [None]
  - GLYCOSYLATED HAEMOGLOBIN INCREASED [None]
